FAERS Safety Report 24890035 (Version 2)
Quarter: 2025Q2

REPORT INFORMATION
  Report Type: Report from Study
  Country: US (occurrence: US)
  Receive Date: 20250127
  Receipt Date: 20250616
  Transmission Date: 20250717
  Serious: Yes (Hospitalization, Other)
  Sender: XERIS PHARMACEUTICALS
  Company Number: US-BRIAN CONNER SVP QUALITY AND CHIEF COMPLIANCE OFFICER-2025XER00041

PATIENT
  Age: 74 Year
  Sex: Male

DRUGS (2)
  1. RECORLEV [Suspect]
     Active Substance: LEVOKETOCONAZOLE
     Indication: Benign neoplasm of adrenal gland
     Dosage: 1 TABLET (150 MG), 2X/DAY
     Route: 048
     Dates: start: 20241108
  2. RECORLEV [Suspect]
     Active Substance: LEVOKETOCONAZOLE
     Indication: Cushing^s syndrome

REACTIONS (3)
  - Renal failure [Not Recovered/Not Resolved]
  - Sepsis [Not Recovered/Not Resolved]
  - Neoplasm malignant [Not Recovered/Not Resolved]

NARRATIVE: CASE EVENT DATE: 20250602
